FAERS Safety Report 7127235-1 (Version None)
Quarter: 2010Q4

REPORT INFORMATION
  Report Type: 
  Country: None (occurrence: None)
  Receive Date: 20101129
  Receipt Date: 20100318
  Transmission Date: 20110411
  Serious: No
  Sender: FDA-Public Use
  Company Number: US-PFIZER INC-2010036039

PATIENT
  Sex: Male
  Weight: 63.492 kg

DRUGS (1)
  1. VIAGRA [Suspect]
     Indication: ERECTILE DYSFUNCTION
     Dosage: 50 MG, AS NEEDED
     Route: 048
     Dates: start: 20100201, end: 20100201

REACTIONS (2)
  - PHOTOPHOBIA [None]
  - VISUAL IMPAIRMENT [None]
